FAERS Safety Report 9638083 (Version 3)
Quarter: 2013Q4

REPORT INFORMATION
  Report Type: Spontaneous
  Country: US (occurrence: US)
  Receive Date: 20131022
  Receipt Date: 20131023
  Transmission Date: 20140711
  Serious: No
  Sender: FDA-Public Use
  Company Number: US-PFIZER INC-2013296133

PATIENT
  Age: 65 Year
  Sex: Male
  Weight: 59 kg

DRUGS (2)
  1. LYRICA [Suspect]
     Indication: FIBROMYALGIA
     Dosage: 75 MG, 6X/DAY
     Dates: start: 201307
  2. VICODIN [Concomitant]
     Dosage: 10/325 MG, 6X/DAY

REACTIONS (1)
  - Pain [Not Recovered/Not Resolved]
